FAERS Safety Report 8085380-0 (Version None)
Quarter: 2012Q1

REPORT INFORMATION
  Report Type: 
  Country: None (occurrence: None)
  Receive Date: 20120128
  Receipt Date: 20110427
  Transmission Date: 20120608
  Serious: No
  Sender: FDA-Public Use
  Company Number: US-ABBOTT-10P-163-0676533-00

PATIENT
  Sex: Female
  Weight: 63.56 kg

DRUGS (5)
  1. DAYPRO [Concomitant]
     Indication: PRODUCT USED FOR UNKNOWN INDICATION
     Dosage: USUALLY TAKES IN WINTER
     Route: 048
  2. HUMIRA [Suspect]
     Route: 058
     Dates: start: 20100701
  3. BONIVA [Concomitant]
     Indication: OSTEOPENIA
     Dosage: UNKNOWN STRENGTH
     Route: 048
  4. HUMIRA [Suspect]
     Indication: PSORIATIC ARTHROPATHY
     Route: 058
     Dates: start: 20030101
  5. ALLEGRA [Concomitant]
     Indication: SEASONAL ALLERGY
     Route: 048

REACTIONS (4)
  - INJECTION SITE PAIN [None]
  - NAIL INJURY [None]
  - LACERATION [None]
  - INJECTION SITE HAEMATOMA [None]
